FAERS Safety Report 7630593-2 (Version None)
Quarter: 2011Q3

REPORT INFORMATION
  Report Type: 
  Country: None (occurrence: None)
  Receive Date: 20110722
  Receipt Date: 20110708
  Transmission Date: 20111222
  Serious: Yes (Other)
  Sender: FDA-Public Use
  Company Number: SA-WATSON-2011-11094

PATIENT
  Sex: Male

DRUGS (3)
  1. CARBOPLATIN [Suspect]
     Indication: ADENOCARCINOMA
     Dosage: 600 MG, UNK
     Route: 065
  2. PACLITAXEL [Suspect]
     Indication: ADENOCARCINOMA
     Dosage: 350 MG, UNK
     Route: 065
  3. BEVACIZUMAB [Suspect]
     Indication: ADENOCARCINOMA
     Dosage: 750 MG, UNK
     Route: 065

REACTIONS (1)
  - SINUS BRADYCARDIA [None]
